FAERS Safety Report 19162167 (Version 4)
Quarter: 2022Q1

REPORT INFORMATION
  Report Type: Spontaneous
  Country: JP (occurrence: JP)
  Receive Date: 20210421
  Receipt Date: 20220323
  Transmission Date: 20220423
  Serious: Yes (Life-Threatening, Hospitalization)
  Sender: FDA-Public Use
  Company Number: JP-TAIHO-TT210133_P_1

PATIENT
  Age: 83 Year
  Sex: Male
  Weight: 60.6 kg

DRUGS (9)
  1. LONSURF [Suspect]
     Active Substance: TIPIRACIL HYDROCHLORIDE\TRIFLURIDINE
     Indication: Colon cancer metastatic
     Dosage: DETAILS NOT REPORTED, 10 DOSING DAYS, CYCLE 1
     Route: 048
     Dates: start: 20210311, end: 20210324
  2. LONSURF [Suspect]
     Active Substance: TIPIRACIL HYDROCHLORIDE\TRIFLURIDINE
     Dosage: DETAILS NOT REPORTED
     Route: 048
     Dates: start: 20210415, end: 20210418
  3. FILGRASTIM [Concomitant]
     Active Substance: FILGRASTIM
     Dosage: DETAILS NOT REPORTED
     Route: 058
     Dates: start: 20210324, end: 20210401
  4. MAXIPIME [Concomitant]
     Active Substance: CEFEPIME HYDROCHLORIDE
     Dosage: DETAILS NOT REPORTED
     Route: 041
     Dates: start: 20210324, end: 20210327
  5. MEROPENEM [Concomitant]
     Active Substance: MEROPENEM
     Dosage: DETAILS NOT REPORTED
     Route: 041
     Dates: start: 20210327, end: 20210401
  6. THROMBOMODULIN ALFA [Concomitant]
     Active Substance: THROMBOMODULIN ALFA
     Indication: Disseminated intravascular coagulation
     Dosage: DETAILS NOT REPORTED
     Route: 041
     Dates: start: 20210327, end: 20210331
  7. TARGOCID [Concomitant]
     Active Substance: TEICOPLANIN
     Dosage: DETAILS NOT REPORTED
     Route: 041
     Dates: start: 20210329, end: 20210331
  8. MICAFUNGIN SODIUM [Concomitant]
     Active Substance: MICAFUNGIN SODIUM
     Dosage: DETAILS NOT REPORTED
     Route: 041
     Dates: start: 20210329, end: 20210401
  9. PIPERACILLIN SODIUM\TAZOBACTAM SODIUM [Concomitant]
     Active Substance: PIPERACILLIN SODIUM\TAZOBACTAM SODIUM
     Dosage: DETAILS NOT REPORTED
     Route: 041
     Dates: start: 20210401, end: 20210404

REACTIONS (6)
  - Febrile neutropenia [Recovering/Resolving]
  - Urinary tract infection [Recovering/Resolving]
  - Pancytopenia [Recovering/Resolving]
  - Sepsis [Recovering/Resolving]
  - Disseminated intravascular coagulation [Recovering/Resolving]
  - Pyrexia [Recovering/Resolving]

NARRATIVE: CASE EVENT DATE: 20210324
